FAERS Safety Report 7098703-6 (Version None)
Quarter: 2010Q4

REPORT INFORMATION
  Report Type: 
  Country: None (occurrence: None)
  Receive Date: 20101112
  Receipt Date: 20101101
  Transmission Date: 20110411
  Serious: Yes (Hospitalization, Other)
  Sender: FDA-Public Use
  Company Number: US-CELGENEUS-163-21880-10072436

PATIENT
  Sex: Female
  Weight: 59.02 kg

DRUGS (14)
  1. REVLIMID [Suspect]
     Indication: MYELODYSPLASTIC SYNDROME
     Route: 048
     Dates: start: 20060323
  2. REVLIMID [Suspect]
     Route: 048
     Dates: start: 20061001
  3. REVLIMID [Suspect]
     Route: 048
     Dates: start: 20070209, end: 20080501
  4. REVLIMID [Suspect]
     Route: 048
     Dates: start: 20090102, end: 20100630
  5. ORTHO-EST [Concomitant]
     Route: 048
  6. MULTI-VITAMINS [Concomitant]
     Route: 048
  7. CALTRATE [Concomitant]
     Route: 065
  8. VITAMIN D [Concomitant]
     Route: 065
  9. LOVASTATIN [Concomitant]
     Route: 048
  10. ALENDRONATE SODIUM [Concomitant]
     Route: 065
  11. FUROSEMIDE [Concomitant]
     Dosage: 50MG IN AM, 30MG IN PM
     Route: 048
  12. PANTOPRAZOLE [Concomitant]
     Route: 048
  13. HYDROCODONE BITARTRATE + ACETAMINOPHEN [Concomitant]
     Dosage: 5/325MG
     Route: 065
  14. LEVOTHYROXINE SODIUM [Concomitant]
     Route: 048

REACTIONS (9)
  - ACUTE MYELOID LEUKAEMIA [None]
  - BRONCHITIS [None]
  - CARDIAC FAILURE CONGESTIVE [None]
  - DRUG INEFFECTIVE [None]
  - HAEMOGLOBIN DECREASED [None]
  - MYELODYSPLASTIC SYNDROME TRANSFORMATION [None]
  - PHLEBITIS SUPERFICIAL [None]
  - PNEUMONIA [None]
  - STASIS DERMATITIS [None]
